FAERS Safety Report 25615885 (Version 1)
Quarter: 2025Q3

REPORT INFORMATION
  Report Type: Spontaneous
  Country: EU (occurrence: EU)
  Receive Date: 20250729
  Receipt Date: 20250729
  Transmission Date: 20251020
  Serious: Yes (Hospitalization, Other)
  Sender: AUROBINDO
  Company Number: EU-AFSSAPS-AVPO2025000174

PATIENT
  Age: 14 Year
  Sex: Female

DRUGS (1)
  1. DIAZEPAM [Suspect]
     Active Substance: DIAZEPAM
     Indication: Product used for unknown indication
     Route: 065
     Dates: start: 20250616, end: 20250616

REACTIONS (6)
  - Hallucination, visual [Recovering/Resolving]
  - Agitation [Recovering/Resolving]
  - Hyperthermia [Recovering/Resolving]
  - Mydriasis [Recovering/Resolving]
  - Sinus tachycardia [Recovering/Resolving]
  - Drug abuse [Recovered/Resolved]

NARRATIVE: CASE EVENT DATE: 20250616
